FAERS Safety Report 25890491 (Version 1)
Quarter: 2025Q4

REPORT INFORMATION
  Report Type: Spontaneous
  Country: US (occurrence: None)
  Receive Date: 20251006
  Receipt Date: 20251006
  Transmission Date: 20260118
  Serious: Yes (Hospitalization, Other)
  Sender: FDA-CTU
  Company Number: None

PATIENT
  Age: 22 Year
  Sex: Male
  Weight: 93.5 kg

DRUGS (1)
  1. NEMLUVIO [Suspect]
     Active Substance: NEMOLIZUMAB-ILTO
     Dosage: OTHER FREQUENCY : ONCE;?
     Route: 058

REACTIONS (7)
  - Dermatitis exfoliative generalised [None]
  - Chills [None]
  - Tremor [None]
  - Body temperature decreased [None]
  - Skin odour abnormal [None]
  - Blood culture positive [None]
  - Staphylococcal bacteraemia [None]

NARRATIVE: CASE EVENT DATE: 20251002
